FAERS Safety Report 9685259 (Version 1)
Quarter: 2013Q4

REPORT INFORMATION
  Report Type: Spontaneous
  Country: US (occurrence: None)
  Receive Date: 20131112
  Receipt Date: 20131112
  Transmission Date: 20140711
  Serious: Yes (Hospitalization)
  Sender: FDA-Public Use
  Company Number: None

PATIENT
  Age: 93 Year
  Sex: 0
  Weight: 76 kg

DRUGS (1)
  1. PRADAXA [Suspect]
     Indication: CEREBROVASCULAR ACCIDENT
     Dosage: 1 CAPSULE, BID, ORAL

REACTIONS (3)
  - Rectal haemorrhage [None]
  - Haematemesis [None]
  - Gastrointestinal haemorrhage [None]
